FAERS Safety Report 21963393 (Version 2)
Quarter: 2023Q1

REPORT INFORMATION
  Report Type: Spontaneous
  Country: US (occurrence: US)
  Receive Date: 20230207
  Receipt Date: 20230322
  Transmission Date: 20230417
  Serious: No
  Sender: FDA-Public Use
  Company Number: US-PFIZER INC-PV202200040385

PATIENT
  Age: 13 Year
  Sex: Male
  Weight: 43.54 kg

DRUGS (3)
  1. GENOTROPIN [Suspect]
     Active Substance: SOMATROPIN
     Indication: Short stature
     Dosage: 2 MG, DAILY
  2. GENOTROPIN [Suspect]
     Active Substance: SOMATROPIN
     Dosage: 2.0 6 TIMES A WEEK
     Route: 058
     Dates: start: 202208
  3. ANASTROZOLE [Concomitant]
     Active Substance: ANASTROZOLE
     Indication: Bone development abnormal
     Dosage: 1 MG, DAILY
     Route: 048

REACTIONS (3)
  - Wrong technique in device usage process [Unknown]
  - Device mechanical issue [Unknown]
  - Inappropriate schedule of product administration [Unknown]
